FAERS Safety Report 8534889-1 (Version None)
Quarter: 2012Q3

REPORT INFORMATION
  Report Type: 
  Country: None (occurrence: None)
  Receive Date: 20120724
  Receipt Date: 20120717
  Transmission Date: 20120928
  Serious: Yes (Hospitalization, Other)
  Sender: FDA-Public Use
  Company Number: CA-ROCHE-1072835

PATIENT
  Sex: Female
  Weight: 122.13 kg

DRUGS (7)
  1. MABTHERA [Suspect]
     Indication: RHEUMATOID ARTHRITIS
     Route: 042
     Dates: start: 20111114
  2. ACETAMINOPHEN [Concomitant]
     Route: 048
     Dates: start: 20111212, end: 20111212
  3. METHYLPREDNISOLONE [Concomitant]
     Route: 042
     Dates: start: 20111212, end: 20111212
  4. PREDNISONE [Concomitant]
  5. ZOLEDRONOC ACID [Concomitant]
  6. DIPHENHYDRAMINE HCL [Concomitant]
     Route: 048
     Dates: start: 20111212, end: 20111212
  7. METHOTREXATE [Concomitant]

REACTIONS (4)
  - BRONCHITIS [None]
  - PNEUMONIA [None]
  - NASAL CYST [None]
  - PULMONARY EMBOLISM [None]
